FAERS Safety Report 21229395 (Version 1)
Quarter: 2022Q3

REPORT INFORMATION
  Report Type: Report from Study
  Country: US (occurrence: US)
  Receive Date: 20220818
  Receipt Date: 20220818
  Transmission Date: 20221027
  Serious: Yes (Hospitalization)
  Sender: FDA-Public Use
  Company Number: US-Taiho Oncology Inc-EU-2022-02036

PATIENT
  Age: 65 Year
  Sex: Female
  Weight: 96.9 kg

DRUGS (6)
  1. TIPIRACIL HYDROCHLORIDE\TRIFLURIDINE [Suspect]
     Active Substance: TIPIRACIL HYDROCHLORIDE\TRIFLURIDINE
     Indication: Colorectal cancer
     Dosage: CYCLE1
     Route: 048
     Dates: start: 20220804
  2. IRINOTECAN [Suspect]
     Active Substance: IRINOTECAN
     Indication: Colorectal cancer
     Dosage: CYCLE 1
     Route: 042
     Dates: start: 20220803
  3. BEVACIZUMAB [Suspect]
     Active Substance: BEVACIZUMAB
     Indication: Colorectal cancer
     Dosage: CYCLE 1
     Route: 042
     Dates: start: 20220803
  4. ALEVE [Concomitant]
     Active Substance: NAPROXEN SODIUM
  5. HYDROCODONE [Concomitant]
     Active Substance: HYDROCODONE
  6. BACLOFEN [Concomitant]
     Active Substance: BACLOFEN

REACTIONS (2)
  - Urinary tract infection [Recovered/Resolved]
  - Flank pain [Recovered/Resolved]

NARRATIVE: CASE EVENT DATE: 20220808
